FAERS Safety Report 9637672 (Version 1)
Quarter: 2013Q4

REPORT INFORMATION
  Report Type: Report from Study
  Country: KR (occurrence: KR)
  Receive Date: 20131022
  Receipt Date: 20131022
  Transmission Date: 20140711
  Serious: Yes (Other)
  Sender: FDA-Public Use
  Company Number: KR-ROCHE-1289252

PATIENT
  Age: 50 Year
  Sex: Female

DRUGS (3)
  1. RIBAVIRIN [Suspect]
     Indication: H1N1 INFLUENZA
     Route: 065
  2. OSELTAMIVIR [Suspect]
     Indication: H1N1 INFLUENZA
     Route: 065
  3. AMANTADINE [Suspect]
     Indication: H1N1 INFLUENZA
     Route: 065

REACTIONS (1)
  - Haemolytic anaemia [Unknown]
